FAERS Safety Report 12582170 (Version 1)
Quarter: 2016Q3

REPORT INFORMATION
  Report Type: Spontaneous
  Country: FR (occurrence: FR)
  Receive Date: 20160722
  Receipt Date: 20160722
  Transmission Date: 20161109
  Serious: Yes (Hospitalization)
  Sender: FDA-Public Use
  Company Number: FR-AUROBINDO-AUR-APL-2016-09110

PATIENT
  Age: 39 Year
  Sex: Female

DRUGS (2)
  1. IBUPROFEN. [Suspect]
     Active Substance: IBUPROFEN
     Indication: MYALGIA
     Dosage: 150 MG, DAILY
     Route: 065
  2. VENLAFAXINE 75MG [Suspect]
     Active Substance: VENLAFAXINE HYDROCHLORIDE
     Indication: PRODUCT USED FOR UNKNOWN INDICATION
     Dosage: 75 MG, DAILY
     Route: 065

REACTIONS (9)
  - Oliguria [Recovered/Resolved]
  - Weight increased [Recovered/Resolved]
  - Blood creatine phosphokinase increased [Recovered/Resolved]
  - Acute kidney injury [Recovered/Resolved]
  - Back pain [Recovered/Resolved]
  - Myalgia [Recovered/Resolved]
  - Rhabdomyolysis [Recovered/Resolved]
  - Chromaturia [Recovered/Resolved]
  - Oedema peripheral [Recovered/Resolved]
